FAERS Safety Report 10181537 (Version 2)
Quarter: 2014Q3

REPORT INFORMATION
  Report Type: Spontaneous
  Country: US (occurrence: US)
  Receive Date: 20140519
  Receipt Date: 20140715
  Transmission Date: 20150326
  Serious: Yes (Other)
  Sender: FDA-Public Use
  Company Number: US-GLAXOSMITHKLINE-A1073544A

PATIENT
  Sex: Female

DRUGS (1)
  1. SEREVENT [Suspect]
     Active Substance: SALMETEROL XINAFOATE
     Indication: PRODUCT USED FOR UNKNOWN INDICATION
     Route: 065

REACTIONS (6)
  - Product quality issue [Unknown]
  - Drug ineffective [Unknown]
  - Oxygen supplementation [Unknown]
  - Ill-defined disorder [Unknown]
  - Traumatic lung injury [Unknown]
  - Device misuse [Unknown]
